FAERS Safety Report 19672644 (Version 3)
Quarter: 2021Q4

REPORT INFORMATION
  Report Type: Report from Study
  Country: JP (occurrence: JP)
  Receive Date: 20210808
  Receipt Date: 20211003
  Transmission Date: 20220303
  Serious: Yes (Hospitalization)
  Sender: FDA-Public Use
  Company Number: JP-CELLTRION INC.-2020JP024846

PATIENT

DRUGS (8)
  1. INFLIXIMAB-DYYB [Suspect]
     Active Substance: INFLIXIMAB-DYYB
     Indication: Colitis ulcerative
     Dosage: 345 MG (WT. 68.6 KG)
     Route: 041
     Dates: start: 20181117, end: 20181117
  2. INFLIXIMAB-DYYB [Suspect]
     Active Substance: INFLIXIMAB-DYYB
     Dosage: 340 MG (WT. 68 KG)
     Route: 041
     Dates: start: 20190113, end: 20190113
  3. INFLIXIMAB-DYYB [Suspect]
     Active Substance: INFLIXIMAB-DYYB
     Dosage: 330 MG (WT. 66 KG)
     Route: 041
     Dates: start: 20190303, end: 20190303
  4. INFLIXIMAB-DYYB [Suspect]
     Active Substance: INFLIXIMAB-DYYB
     Dosage: 325 MG (WT. 65 KG)
     Route: 041
     Dates: start: 20190428, end: 20190428
  5. INFLIXIMAB-DYYB [Suspect]
     Active Substance: INFLIXIMAB-DYYB
     Dosage: 300 MG (WT. 61.1 KG)
     Route: 041
     Dates: start: 20191202, end: 20191202
  6. INFLIXIMAB-DYYB [Suspect]
     Active Substance: INFLIXIMAB-DYYB
     Dosage: 320 MG (WT. 63.5 KG)
     Route: 041
     Dates: start: 20201107, end: 20201107
  7. MESALAMINE [Concomitant]
     Active Substance: MESALAMINE
     Dosage: 4000 MG, DAILY
     Route: 048
  8. AZATHIOPRINE [Concomitant]
     Active Substance: AZATHIOPRINE
     Dosage: 50 MG, DAILY
     Route: 048

REACTIONS (7)
  - Depression [Unknown]
  - Skin exfoliation [Unknown]
  - Abdominal pain upper [Not Recovered/Not Resolved]
  - Overdose [Unknown]
  - Underdose [Unknown]
  - Off label use [Unknown]
  - Product use issue [Unknown]

NARRATIVE: CASE EVENT DATE: 20190810
